FAERS Safety Report 9722982 (Version 1)
Quarter: 2013Q4

REPORT INFORMATION
  Report Type: Spontaneous
  Country: US (occurrence: None)
  Receive Date: 20131127
  Receipt Date: 20131127
  Transmission Date: 20140711
  Serious: Yes (Hospitalization)
  Sender: FDA-Public Use
  Company Number: None

PATIENT
  Age: 30 Year
  Sex: Female
  Weight: 45.9 kg

DRUGS (4)
  1. ACTEMRA [Suspect]
     Indication: RENAL TRANSPLANT
     Dosage: 8MG/KG=297MG, ONCE, IVPB
     Dates: start: 20131108
  2. PROGRAF 3 MG [Concomitant]
  3. CELLCEPT 50MG [Concomitant]
  4. PREDNISONE 10MG [Concomitant]

REACTIONS (3)
  - Cystitis [None]
  - Urinary tract infection enterococcal [None]
  - Escherichia urinary tract infection [None]
